FAERS Safety Report 8461092-6 (Version None)
Quarter: 2012Q2

REPORT INFORMATION
  Report Type: 
  Country: None (occurrence: None)
  Receive Date: 20120625
  Receipt Date: 20120615
  Transmission Date: 20120825
  Serious: No
  Sender: FDA-Public Use
  Company Number: US-BIOGENIDEC-2012BI021557

PATIENT
  Age: 50 Year
  Sex: Male

DRUGS (3)
  1. AVONEX [Suspect]
     Route: 030
     Dates: start: 20030801, end: 20120602
  2. AVONEX [Suspect]
     Indication: MULTIPLE SCLEROSIS
     Route: 030
     Dates: start: 20000601, end: 20030801
  3. AVONEX [Suspect]
     Route: 030
     Dates: start: 20120609

REACTIONS (1)
  - INJECTION SITE HAEMORRHAGE [None]
